FAERS Safety Report 10798376 (Version 1)
Quarter: 2015Q1

REPORT INFORMATION
  Report Type: Report from Study
  Country: ES (occurrence: ES)
  Receive Date: 20150216
  Receipt Date: 20150216
  Transmission Date: 20150721
  Serious: Yes (Hospitalization)
  Sender: FDA-Public Use
  Company Number: ES-ABBVIE-15P-144-1347104-00

PATIENT
  Age: 72 Year
  Sex: Female

DRUGS (2)
  1. OMEPRAZOL [Concomitant]
     Active Substance: OMEPRAZOLE
     Indication: PRODUCT USED FOR UNKNOWN INDICATION
  2. LEVODOPA/CARBIDOPA [Suspect]
     Active Substance: CARBIDOPA\LEVODOPA
     Indication: PARKINSON^S DISEASE
     Route: 050
     Dates: start: 201302

REACTIONS (4)
  - Pyrexia [Unknown]
  - Gallbladder perforation [Unknown]
  - Pancreatitis [Unknown]
  - Nausea [Unknown]

NARRATIVE: CASE EVENT DATE: 201502
